FAERS Safety Report 16721192 (Version 1)
Quarter: 2019Q3

REPORT INFORMATION
  Report Type: Spontaneous
  Country: US (occurrence: US)
  Receive Date: 20190820
  Receipt Date: 20190820
  Transmission Date: 20191005
  Serious: Yes (Other)
  Sender: FDA-Public Use
  Company Number: PHHY2019US188900

PATIENT
  Age: 61 Year
  Sex: Male
  Weight: 65 kg

DRUGS (7)
  1. ETRAVIRINE [Concomitant]
     Active Substance: ETRAVIRINE
     Indication: HIV INFECTION
     Dosage: 200 MG, BID
     Route: 065
  2. VORICONAZOLE. [Suspect]
     Active Substance: VORICONAZOLE
     Indication: BRONCHOPULMONARY ASPERGILLOSIS ALLERGIC
     Dosage: 200 MG, BID
     Route: 048
  3. TENOFOVIR DISOPROXIL FUMARATE. [Concomitant]
     Active Substance: TENOFOVIR DISOPROXIL FUMARATE
     Indication: HIV INFECTION
     Dosage: 300 MG, QD
     Route: 065
  4. DARUNAVIR [Concomitant]
     Active Substance: DARUNAVIR
     Indication: HIV INFECTION
     Dosage: 800 MG, QD
     Route: 065
  5. ATAZANAVIR. [Concomitant]
     Active Substance: ATAZANAVIR
     Indication: HIV INFECTION
     Dosage: 400 MG, QD
     Route: 065
  6. RITONAVIR. [Interacting]
     Active Substance: RITONAVIR
     Indication: HIV INFECTION
     Dosage: 100 MG, QD
     Route: 065
  7. RALTEGRAVIR. [Concomitant]
     Active Substance: RALTEGRAVIR
     Indication: HIV INFECTION
     Dosage: 400 MG, BID
     Route: 065

REACTIONS (2)
  - Blood HIV RNA increased [Recovering/Resolving]
  - Drug interaction [Unknown]
